FAERS Safety Report 11937056 (Version 1)
Quarter: 2016Q1

REPORT INFORMATION
  Report Type: Spontaneous
  Country: US (occurrence: US)
  Receive Date: 20160121
  Receipt Date: 20160121
  Transmission Date: 20160526
  Serious: Yes (Hospitalization, Disabling, Other)
  Sender: FDA-Public Use
  Company Number: US-BRISTOL-MYERS SQUIBB COMPANY-BMS-2016-002038

PATIENT
  Sex: Male
  Weight: 88.44 kg

DRUGS (3)
  1. ELIQUIS [Suspect]
     Active Substance: APIXABAN
     Dosage: 5 MG, BID
     Route: 048
     Dates: start: 201507
  2. ELIQUIS [Suspect]
     Active Substance: APIXABAN
     Indication: THROMBOSIS PROPHYLAXIS
     Dosage: 10 MG, BID
     Route: 048
     Dates: start: 201507
  3. HYDROCODONE [Concomitant]
     Active Substance: HYDROCODONE
     Indication: PRODUCT USED FOR UNKNOWN INDICATION
     Dosage: 7.5 MG, BID
     Route: 065

REACTIONS (7)
  - Drug dose omission [Unknown]
  - Back pain [Recovering/Resolving]
  - Chromaturia [Unknown]
  - Hospitalisation [Unknown]
  - Joint swelling [Recovering/Resolving]
  - Muscular weakness [Recovering/Resolving]
  - Polyuria [Unknown]
